FAERS Safety Report 8978157 (Version 1)
Quarter: 2012Q4

REPORT INFORMATION
  Report Type: 
  Country: US (occurrence: US)
  Receive Date: 20121221
  Receipt Date: 20121221
  Transmission Date: 20130627
  Serious: Yes (Other)
  Sender: FDA-Public Use
  Company Number: US-BAYER-2012-133558

PATIENT
  Age: 23 Year
  Sex: Female
  Weight: 150.57 kg

DRUGS (5)
  1. YAZ [Suspect]
  2. GIANVI [Suspect]
  3. HYDROCODONE W/ACETAMINOPHEN [Concomitant]
     Dosage: 5-
     Dates: start: 20110130
  4. CYCLOBENZAPRINE HYDROCHLORIDE [Concomitant]
     Dosage: 10 mg, UNK
     Dates: start: 20110130
  5. VICODIN [Concomitant]

REACTIONS (1)
  - Pelvic venous thrombosis [None]
